FAERS Safety Report 6902248-0 (Version None)
Quarter: 2010Q3

REPORT INFORMATION
  Report Type: 
  Country: None (occurrence: None)
  Receive Date: 20100803
  Receipt Date: 20080507
  Transmission Date: 20110219
  Serious: No
  Sender: FDA-Public Use
  Company Number: US-PFIZER INC-2008040442

PATIENT
  Sex: Female

DRUGS (5)
  1. LYRICA [Suspect]
     Indication: FIBROMYALGIA
     Dates: start: 20080101
  2. POTASSIUM [Concomitant]
  3. LASIX [Concomitant]
  4. ZAROXOLYN [Concomitant]
  5. GINKGO BILOBA EXTRACT [Concomitant]

REACTIONS (1)
  - TINNITUS [None]
